FAERS Safety Report 14423226 (Version 1)
Quarter: 2018Q1

REPORT INFORMATION
  Report Type: Spontaneous
  Country: US (occurrence: US)
  Receive Date: 20180123
  Receipt Date: 20180123
  Transmission Date: 20180509
  Serious: No
  Sender: FDA-Public Use
  Company Number: US-JNJFOC-20180116771

PATIENT
  Age: 23 Year
  Sex: Female
  Weight: 56.7 kg

DRUGS (1)
  1. REMICADE [Suspect]
     Active Substance: INFLIXIMAB
     Indication: UVEITIS
     Route: 042
     Dates: start: 20180111

REACTIONS (7)
  - Inappropriate schedule of drug administration [Unknown]
  - Dizziness [Unknown]
  - Product use in unapproved indication [Unknown]
  - Intraocular pressure increased [Unknown]
  - Infusion related reaction [Unknown]
  - Photopsia [Not Recovered/Not Resolved]
  - Off label use [Unknown]

NARRATIVE: CASE EVENT DATE: 20180111
